FAERS Safety Report 17036479 (Version 2)
Quarter: 2019Q4

REPORT INFORMATION
  Report Type: Spontaneous
  Country: DE (occurrence: DE)
  Receive Date: 20191115
  Receipt Date: 20191127
  Transmission Date: 20200122
  Serious: Yes (Hospitalization, Other)
  Sender: FDA-Public Use
  Company Number: DE-TORRENT-00015469

PATIENT
  Age: 59 Year
  Sex: Female
  Weight: 103 kg

DRUGS (17)
  1. DICLOFENAC [Suspect]
     Active Substance: DICLOFENAC
     Indication: PRODUCT USED FOR UNKNOWN INDICATION
     Dosage: UNKNOWN
     Route: 065
  2. VALSARTAN 1 [Suspect]
     Active Substance: VALSARTAN
     Indication: PRODUCT USED FOR UNKNOWN INDICATION
     Dosage: 1 DF (80/12.5 MG), QD (MORNING)
     Route: 065
  3. VALSARTAN. [Suspect]
     Active Substance: VALSARTAN
     Indication: HYPERTENSION
     Dosage: UNK, (IN THE MORNINGS)
     Route: 048
     Dates: start: 2006
  4. VALSARTAN AND HYDROCHLOROTHIAZIDE [Suspect]
     Active Substance: HYDROCHLOROTHIAZIDE\VALSARTAN
     Indication: HYPERTENSION
     Dosage: 1 DF (80/12.5 MG), QD (MORNING)
     Route: 065
     Dates: start: 2006
  5. VOTUM [Concomitant]
     Indication: PRODUCT USED FOR UNKNOWN INDICATION
     Dosage: 0.5 DF, QD (10MG) MORNING
     Route: 065
     Dates: start: 2005
  6. HYDROCHLOROTHIAZIDE. [Concomitant]
     Active Substance: HYDROCHLOROTHIAZIDE
     Indication: HYPERTENSION
     Dosage: 125 OT, UNKNOWN
     Route: 048
  7. CLARITHROMYCIN. [Suspect]
     Active Substance: CLARITHROMYCIN
     Indication: PRODUCT USED FOR UNKNOWN INDICATION
     Dosage: UNKNOWN
     Route: 065
  8. VALSARTAN 1 [Suspect]
     Active Substance: VALSARTAN
     Indication: PRODUCT USED FOR UNKNOWN INDICATION
     Dosage: 1 DF (80/12.5 MG), QD (MORNING)
     Route: 065
     Dates: start: 20141202, end: 201808
  9. IODIDE [Concomitant]
     Active Substance: IODINE
     Indication: GOITRE
     Dosage: 200 MG, QD SINCE YEARS  (MORNING)
     Route: 048
     Dates: start: 2000, end: 2000
  10. OMEGA 3 [Concomitant]
     Active Substance: OMEGA-3 FATTY ACIDS
     Indication: PRODUCT USED FOR UNKNOWN INDICATION
     Dosage: UNKNOWN
     Route: 065
  11. VALDOXAN [Concomitant]
     Active Substance: AGOMELATINE
     Indication: PRODUCT USED FOR UNKNOWN INDICATION
     Dosage: 25 MG, QD (MORNING)
     Route: 065
     Dates: start: 20120116
  12. DOXYCYCLINE. [Suspect]
     Active Substance: DOXYCYCLINE
     Indication: PRODUCT USED FOR UNKNOWN INDICATION
     Dosage: UNKNOWN
     Route: 065
  13. PROPOFOL. [Suspect]
     Active Substance: PROPOFOL
     Indication: PRODUCT USED FOR UNKNOWN INDICATION
     Dosage: UNKNOWN
     Route: 065
  14. HEPARIN SODIUM. [Concomitant]
     Active Substance: HEPARIN SODIUM
     Indication: LYMPHADENECTOMY
     Dosage: UNKNOWN
     Route: 005
  15. IBUPROFEN. [Concomitant]
     Active Substance: IBUPROFEN
     Indication: PAIN
     Dosage: 400 MG, QD (IN THE MORNINGS)
     Route: 065
  16. PANTOPRAZOL [Concomitant]
     Active Substance: PANTOPRAZOLE SODIUM
     Indication: PRODUCT USED FOR UNKNOWN INDICATION
     Dosage: 40 MG, QD (IN THE MORNINGS) ENTERIC-FILM-COATED TABLET
     Route: 065
  17. ZINC. [Concomitant]
     Active Substance: ZINC
     Indication: PRODUCT USED FOR UNKNOWN INDICATION
     Dosage: UNKNOWN
     Route: 065

REACTIONS (33)
  - Lymphoedema [Unknown]
  - Polyarthritis [Not Recovered/Not Resolved]
  - Urinary tract infection enterococcal [Recovered/Resolved]
  - Spinal cord disorder [Unknown]
  - Thrombosis [Unknown]
  - Asthenia [Unknown]
  - Polyuria [Recovering/Resolving]
  - Osteoarthritis [Not Recovered/Not Resolved]
  - Bladder spasm [Unknown]
  - Fatigue [Unknown]
  - Urinary incontinence [Recovering/Resolving]
  - Back pain [Unknown]
  - Lipoedema [Unknown]
  - Pollakiuria [Unknown]
  - Dysuria [Recovered/Resolved]
  - Micturition urgency [Unknown]
  - Incontinence [Unknown]
  - Anal incontinence [Recovering/Resolving]
  - Fistula discharge [Recovering/Resolving]
  - Cough [Unknown]
  - Constipation [Unknown]
  - Carpal tunnel syndrome [Unknown]
  - Pain [Recovering/Resolving]
  - Procedural complication [Unknown]
  - Vaginal haemorrhage [Not Recovered/Not Resolved]
  - Sleep disorder [Unknown]
  - Spinal pain [Unknown]
  - Endometrial cancer [Recovered/Resolved]
  - Drug hypersensitivity [Unknown]
  - Sneezing [Unknown]
  - General physical health deterioration [Unknown]
  - Fibromyalgia [Unknown]
  - Myelopathy [Unknown]

NARRATIVE: CASE EVENT DATE: 2006
